FAERS Safety Report 6238599-5 (Version None)
Quarter: 2009Q2

REPORT INFORMATION
  Report Type: 
  Country: None (occurrence: None)
  Receive Date: 20090618
  Receipt Date: 20090611
  Transmission Date: 20091009
  Serious: Yes (Death, Other)
  Sender: FDA-Public Use
  Company Number: 2009US002417

PATIENT
  Age: 58 Year
  Sex: Male
  Weight: 71 kg

DRUGS (2)
  1. AMBISOME [Suspect]
     Indication: DRUG USE FOR UNKNOWN INDICATION
     Dosage: 3 MG/KG, 3XWEEKLY, IV NOS, 7 MG, 4XWEEKLY, IV NOS
     Route: 042
     Dates: start: 20090101, end: 20090101
  2. AMBISOME [Suspect]
     Indication: DRUG USE FOR UNKNOWN INDICATION
     Dosage: 3 MG/KG, 3XWEEKLY, IV NOS, 7 MG, 4XWEEKLY, IV NOS
     Route: 042
     Dates: start: 20081202, end: 20090102

REACTIONS (3)
  - CEREBROVASCULAR ACCIDENT [None]
  - COMA [None]
  - PYREXIA [None]
